FAERS Safety Report 10841608 (Version 2)
Quarter: 2015Q1

REPORT INFORMATION
  Report Type: Spontaneous
  Country: DK (occurrence: DK)
  Receive Date: 20150220
  Receipt Date: 20150312
  Transmission Date: 20150721
  Serious: Yes (Hospitalization, Other)
  Sender: FDA-Public Use
  Company Number: DK-AMGEN-DNKSP2015015524

PATIENT
  Age: 49 Year
  Sex: Male

DRUGS (1)
  1. ENBREL [Suspect]
     Active Substance: ETANERCEPT
     Indication: PRODUCT USED FOR UNKNOWN INDICATION
     Dosage: UNK UNK, UNK
     Route: 065
     Dates: start: 2009

REACTIONS (4)
  - Amylase increased [Unknown]
  - Pancreatitis acute [Unknown]
  - Nephrolithiasis [Unknown]
  - Appendicitis perforated [Unknown]

NARRATIVE: CASE EVENT DATE: 201202
